FAERS Safety Report 17778019 (Version 2)
Quarter: 2020Q3

REPORT INFORMATION
  Report Type: Report from Study
  Country: US (occurrence: US)
  Receive Date: 20200513
  Receipt Date: 20200701
  Transmission Date: 20201102
  Serious: Yes (Death, Hospitalization)
  Sender: FDA-Public Use
  Company Number: US-BAYER-2019-158804

PATIENT
  Age: 74 Year
  Sex: Female

DRUGS (5)
  1. STIVARGA [Suspect]
     Active Substance: REGORAFENIB
     Indication: COLON CANCER
     Dosage: DAILY DOSE 160 MG X 21 DAYS ON, THEN 7 DAYS OFF
     Dates: start: 20190808, end: 201908
  2. STIVARGA [Suspect]
     Active Substance: REGORAFENIB
     Indication: COLON CANCER
     Dosage: 160MG DAILY FOR 21 OF 28 DAYS
     Dates: start: 20190812
  3. STIVARGA [Suspect]
     Active Substance: REGORAFENIB
     Indication: COLON CANCER
     Dosage: 160 MG ORALLY DAILY FOR 21 DAYS, OFF 7 DAYS.
     Route: 048
  4. STIVARGA [Suspect]
     Active Substance: REGORAFENIB
     Indication: COLON CANCER
     Dosage: 160 MG, QD(FOR 21 DAYS ON, 7 DAYS OFF  )
     Route: 048
  5. STIVARGA [Suspect]
     Active Substance: REGORAFENIB
     Indication: COLON CANCER
     Dosage: DAILY DOSE 160 MG, FOR 21 OF 28 DAYS
     Route: 048
     Dates: end: 20200624

REACTIONS (6)
  - Back pain [None]
  - Death [Fatal]
  - Hospitalisation [Unknown]
  - Fatigue [Unknown]
  - Blood potassium decreased [Unknown]
  - Nausea [Unknown]

NARRATIVE: CASE EVENT DATE: 20200624
